FAERS Safety Report 5408459-8 (Version None)
Quarter: 2007Q3

REPORT INFORMATION
  Report Type: 
  Country: None (occurrence: None)
  Receive Date: 20070808
  Receipt Date: 20070730
  Transmission Date: 20080115
  Serious: Yes (Hospitalization)
  Sender: FDA-Public Use
  Company Number: US-JNJFOC-20070800249

PATIENT
  Sex: Female
  Weight: 45.36 kg

DRUGS (11)
  1. DURAGESIC-100 [Suspect]
     Dosage: 5 X 100UG/HR
     Route: 062
  2. DURAGESIC-100 [Suspect]
     Indication: PAIN
     Dosage: 5X100UG/HR
     Route: 062
  3. ACTIQ [Suspect]
     Indication: PAIN
     Route: 048
  4. ADEKS [Concomitant]
     Indication: VITAMIN SUPPLEMENTATION
     Route: 048
  5. ACTIGALL [Concomitant]
     Indication: CHOLELITHIASIS
     Route: 048
  6. PREVACID [Concomitant]
     Indication: ULCER
     Route: 048
  7. VALTREX [Concomitant]
     Indication: ORAL HERPES
     Route: 048
  8. ADVAIR DISKUS 100/50 [Concomitant]
     Indication: CYSTIC FIBROSIS
     Dosage: 500/50
     Route: 055
  9. INSULIN LENTE [Concomitant]
     Indication: DIABETES MELLITUS
     Route: 058
  10. HUMULIN R [Concomitant]
     Indication: DIABETES MELLITUS
     Route: 058
  11. MORPHINE [Concomitant]
     Indication: PAIN
     Route: 048

REACTIONS (6)
  - APPLICATION SITE ULCER [None]
  - DRUG ADMINISTERED AT INAPPROPRIATE SITE [None]
  - INAPPROPRIATE SCHEDULE OF DRUG ADMINISTRATION [None]
  - LUNG INFECTION [None]
  - TOOTH LOSS [None]
  - WRONG TECHNIQUE IN DRUG USAGE PROCESS [None]
